FAERS Safety Report 7951226-1 (Version None)
Quarter: 2011Q4

REPORT INFORMATION
  Report Type: 
  Country: None (occurrence: None)
  Receive Date: 20111201
  Receipt Date: 20111129
  Transmission Date: 20120403
  Serious: Yes (Death)
  Sender: FDA-Public Use
  Company Number: PHHY2011TR102137

PATIENT
  Age: 58 Year
  Sex: Male

DRUGS (1)
  1. EXELON [Suspect]
     Indication: DEMENTIA ALZHEIMER'S TYPE

REACTIONS (1)
  - DEATH [None]
